FAERS Safety Report 17103005 (Version 1)
Quarter: 2019Q4

REPORT INFORMATION
  Report Type: Spontaneous
  Country: US (occurrence: US)
  Receive Date: 20191202
  Receipt Date: 20191202
  Transmission Date: 20200122
  Serious: Yes (Hospitalization)
  Sender: FDA-Public Use
  Company Number: None

PATIENT
  Age: 63 Year
  Sex: Female

DRUGS (1)
  1. CAPECITABINE. [Suspect]
     Active Substance: CAPECITABINE
     Indication: COLON CANCER
     Route: 048
     Dates: start: 20190927

REACTIONS (7)
  - Diarrhoea [None]
  - Dizziness [None]
  - Syncope [None]
  - Dark circles under eyes [None]
  - Gastroenteritis Escherichia coli [None]
  - Skin discolouration [None]
  - Gait inability [None]

NARRATIVE: CASE EVENT DATE: 20191111
